FAERS Safety Report 5966515-X (Version None)
Quarter: 2008Q4

REPORT INFORMATION
  Report Type: 
  Country: None (occurrence: None)
  Receive Date: 20081125
  Receipt Date: 20081021
  Transmission Date: 20090506
  Serious: No
  Sender: FDA-Public Use
  Company Number: US-AMGEN-KDL314678

PATIENT
  Sex: Female

DRUGS (2)
  1. ENBREL [Suspect]
     Indication: RHEUMATOID ARTHRITIS
     Route: 058
     Dates: start: 20040602
  2. METHOTREXATE [Concomitant]
     Dates: start: 20040602

REACTIONS (5)
  - ABDOMINAL PAIN [None]
  - HYPERHIDROSIS [None]
  - NAUSEA [None]
  - PERIARTHRITIS [None]
  - TOOTH DISORDER [None]
